FAERS Safety Report 8078346-8 (Version None)
Quarter: 2012Q1

REPORT INFORMATION
  Report Type: 
  Country: None (occurrence: None)
  Receive Date: 20120127
  Receipt Date: 20110309
  Transmission Date: 20120608
  Serious: No
  Sender: FDA-Public Use
  Company Number: US-ABBOTT-10P-163-0625622-00

PATIENT
  Sex: Female
  Weight: 56.75 kg

DRUGS (9)
  1. HUMIRA [Suspect]
     Indication: CROHN'S DISEASE
     Dates: start: 20081201, end: 20100101
  2. HUMIRA [Suspect]
     Indication: CROHN'S DISEASE
     Dates: start: 20100101
  3. PREVACID [Concomitant]
     Indication: GASTROOESOPHAGEAL REFLUX DISEASE
  4. MERCAPTOPURINE [Concomitant]
     Indication: CROHN'S DISEASE
  5. FOSAMAX [Concomitant]
     Indication: OSTEOPOROSIS
  6. HUMIRA [Suspect]
  7. FOLIC ACID [Concomitant]
     Indication: PRODUCT USED FOR UNKNOWN INDICATION
  8. HUMIRA [Suspect]
  9. COLESTID [Concomitant]
     Indication: CROHN'S DISEASE

REACTIONS (4)
  - INJECTION SITE HAEMATOMA [None]
  - ADVERSE EVENT [None]
  - INJECTION SITE PAIN [None]
  - INJECTION SITE HAEMORRHAGE [None]
